FAERS Safety Report 12196039 (Version 1)
Quarter: 2016Q1

REPORT INFORMATION
  Report Type: Spontaneous
  Country: US (occurrence: US)
  Receive Date: 20160321
  Receipt Date: 20160321
  Transmission Date: 20160526
  Serious: Yes (Other)
  Sender: FDA-Public Use
  Company Number: US-ABBVIE-16P-163-1585101-00

PATIENT
  Age: 77 Year
  Sex: Male

DRUGS (3)
  1. LUPRON DEPOT [Suspect]
     Active Substance: LEUPROLIDE ACETATE
     Indication: HORMONE-REFRACTORY PROSTATE CANCER
     Route: 065
  2. XTANDI [Suspect]
     Active Substance: ENZALUTAMIDE
     Indication: HORMONE-REFRACTORY PROSTATE CANCER
     Dosage: DURATION: 2 MONTHS 9 DAYS
     Route: 048
     Dates: start: 20151203
  3. BICALUTAMIDE. [Concomitant]
     Active Substance: BICALUTAMIDE
     Indication: PRODUCT USED FOR UNKNOWN INDICATION

REACTIONS (9)
  - Prostatic specific antigen increased [Unknown]
  - Muscular weakness [Recovered/Resolved]
  - Back pain [Recovered/Resolved]
  - Vision blurred [Not Recovered/Not Resolved]
  - Fatigue [Recovering/Resolving]
  - Hot flush [Not Recovered/Not Resolved]
  - Malignant neoplasm progression [Unknown]
  - Headache [Recovered/Resolved]
  - Confusional state [Recovered/Resolved]

NARRATIVE: CASE EVENT DATE: 201512
